FAERS Safety Report 5545824-2 (Version None)
Quarter: 2007Q4

REPORT INFORMATION
  Report Type: 
  Country: None (occurrence: None)
  Receive Date: 20071211
  Receipt Date: 20070917
  Transmission Date: 20080405
  Serious: No
  Sender: FDA-Public Use
  Company Number: US-ASTRAZENECA-2007UW22014

PATIENT
  Age: 49 Year
  Sex: Male

DRUGS (4)
  1. SYMBICORT [Suspect]
     Dosage: 160/4.5 UG
     Route: 055
  2. ATACAND [Concomitant]
  3. COMBIVENT [Concomitant]
     Route: 055
  4. PRILOSEC [Concomitant]

REACTIONS (1)
  - BURNING SENSATION [None]
